FAERS Safety Report 8211226-3 (Version None)
Quarter: 2012Q1

REPORT INFORMATION
  Report Type: 
  Country: None (occurrence: None)
  Receive Date: 20120315
  Receipt Date: 20120308
  Transmission Date: 20120608
  Serious: No
  Sender: FDA-Public Use
  Company Number: US-PFIZER INC-2012064781

PATIENT
  Sex: Female

DRUGS (9)
  1. DOXYCYCLINE [Suspect]
     Dosage: UNK
  2. PREDNISONE TAB [Suspect]
     Dosage: UNK
  3. ZESTRIL [Suspect]
     Dosage: UNK
  4. VIOXX [Suspect]
     Dosage: UNK
  5. METHADONE HCL [Suspect]
     Dosage: UNK
  6. DILAUDID [Suspect]
     Dosage: UNK
  7. VERAPAMIL HCL [Suspect]
     Dosage: UNK
  8. CELEBREX [Suspect]
     Dosage: UNK
  9. PENICILLIN G BENZATHINE AND PENICILLIN G PROCAINE [Suspect]
     Dosage: UNK

REACTIONS (1)
  - DRUG HYPERSENSITIVITY [None]
